FAERS Safety Report 9501558 (Version 1)
Quarter: 2013Q3

REPORT INFORMATION
  Report Type: Spontaneous
  Country: US (occurrence: US)
  Receive Date: 20130905
  Receipt Date: 20130905
  Transmission Date: 20140515
  Serious: No
  Sender: FDA-Public Use
  Company Number: US-BAXTER-2013BAX033499

PATIENT
  Sex: 0

DRUGS (1)
  1. FEIBA NF [Suspect]
     Indication: PRODUCT USED FOR UNKNOWN INDICATION
     Route: 065

REACTIONS (3)
  - Intercepted medication error [Unknown]
  - No adverse event [Recovered/Resolved]
  - Wrong technique in drug usage process [Unknown]
